FAERS Safety Report 24380062 (Version 1)
Quarter: 2024Q3

REPORT INFORMATION
  Report Type: Spontaneous
  Country: US (occurrence: US)
  Receive Date: 20240930
  Receipt Date: 20240930
  Transmission Date: 20241017
  Serious: No
  Sender: EISAI
  Company Number: US-Eisai-EC-2024-174351

PATIENT
  Age: 84 Year
  Sex: Male

DRUGS (1)
  1. LEQEMBI [Suspect]
     Active Substance: LECANEMAB-IRMB
     Indication: Product used for unknown indication
     Dosage: DOSE UNKNOWN
     Route: 042
     Dates: start: 20240911

REACTIONS (8)
  - Pyrexia [Recovering/Resolving]
  - Tremor [Recovered/Resolved]
  - Confusional state [Recovering/Resolving]
  - Balance disorder [Recovering/Resolving]
  - Flushing [Recovering/Resolving]
  - Balance disorder [Recovering/Resolving]
  - Chills [Recovering/Resolving]
  - Headache [Unknown]

NARRATIVE: CASE EVENT DATE: 20240911
